FAERS Safety Report 9692193 (Version 1)
Quarter: 2013Q4

REPORT INFORMATION
  Report Type: Spontaneous
  Country: US (occurrence: US)
  Receive Date: 20131118
  Receipt Date: 20131118
  Transmission Date: 20140711
  Serious: Yes (Other)
  Sender: FDA-Public Use
  Company Number: US-ROCHE-1304135

PATIENT
  Age: 73 Year
  Sex: Male

DRUGS (4)
  1. NAPROXEN [Suspect]
     Indication: ARTHRALGIA
     Route: 065
  2. ASPIRIN [Concomitant]
  3. ATORVASTATIN [Concomitant]
  4. FUROSEMIDE [Concomitant]

REACTIONS (1)
  - Glomerulonephritis membranous [Recovered/Resolved]
